FAERS Safety Report 5757708-5 (Version None)
Quarter: 2008Q2

REPORT INFORMATION
  Report Type: 
  Country: None (occurrence: None)
  Receive Date: 20080529
  Receipt Date: 20080515
  Transmission Date: 20081010
  Serious: Yes (Other)
  Sender: FDA-Public Use
  Company Number: ANTA0800076

PATIENT
  Age: 70 Year
  Sex: Male

DRUGS (2)
  1. FENOFIBRATE [Suspect]
     Indication: HYPERLIPIDAEMIA
     Dosage: 200 MG, QD,
  2. NIFEDIPINE [Concomitant]

REACTIONS (4)
  - HAEMODIALYSIS [None]
  - HYPOTHYROIDISM [None]
  - RENAL FAILURE ACUTE [None]
  - RHABDOMYOLYSIS [None]
